FAERS Safety Report 13805428 (Version 1)
Quarter: 2017Q3

REPORT INFORMATION
  Report Type: Spontaneous
  Country: US (occurrence: US)
  Receive Date: 20170728
  Receipt Date: 20170728
  Transmission Date: 20171127
  Serious: No
  Sender: FDA-Public Use
  Company Number: US-STRIDES ARCOLAB LIMITED-2017SP009046

PATIENT

DRUGS (15)
  1. TACROLIMUS. [Suspect]
     Active Substance: TACROLIMUS
     Indication: LIVER TRANSPLANT
     Dosage: 2 MG, BID
     Route: 065
  2. NIFEDIPINE. [Suspect]
     Active Substance: NIFEDIPINE
     Indication: HYPERTENSION
     Dosage: 30 MG, DAILY
     Route: 065
     Dates: start: 20170518
  3. NORVASC [Suspect]
     Active Substance: AMLODIPINE BESYLATE
     Indication: HYPERTENSION
     Dosage: 10 MG, DAILY
     Dates: end: 20170518
  4. PRENATAL VITAMINS                  /02014401/ [Suspect]
     Active Substance: VITAMINS
     Indication: PREGNANCY
     Dosage: 1 TABLET DAILY
     Route: 065
  5. CALCIUM [Suspect]
     Active Substance: CALCIUM
     Indication: CALCIUM DEFICIENCY
     Dosage: 1 TABLET DAILY
     Route: 065
  6. MAGNESIUM OXIDE. [Suspect]
     Active Substance: MAGNESIUM OXIDE
     Indication: OSTEOPENIA
     Dosage: 400 MG, BID
     Route: 065
     Dates: start: 20170525
  7. BABY ASPIRIN [Suspect]
     Active Substance: ASPIRIN
     Indication: PRODUCT USED FOR UNKNOWN INDICATION
     Dosage: 81 MG, DAILY
     Route: 065
  8. COLACE [Suspect]
     Active Substance: DOCUSATE SODIUM
     Indication: FAECES SOFT
     Dosage: 100 MG, BID
     Route: 065
     Dates: start: 20170622
  9. MYCOPHENOLATE MOFETIL. [Suspect]
     Active Substance: MYCOPHENOLATE MOFETIL
     Indication: LIVER TRANSPLANT
     Dosage: 500 MG, BID
     Route: 048
     Dates: end: 20160621
  10. RIBOFLAVIN [Suspect]
     Active Substance: RIBOFLAVIN
     Indication: HYPOVITAMINOSIS
     Dosage: 400 MG, DAILY
     Route: 065
     Dates: start: 20170525
  11. NPH INSULIN [Suspect]
     Active Substance: INSULIN BEEF
     Indication: GESTATIONAL DIABETES
     Dosage: 8 UNITS
     Route: 065
     Dates: start: 20170607
  12. MYCOPHENOLATE MOFETIL. [Suspect]
     Active Substance: MYCOPHENOLATE MOFETIL
     Dosage: 1000 MG, BID
     Route: 048
     Dates: start: 20160621, end: 20170418
  13. PREDNISOLONE. [Suspect]
     Active Substance: PREDNISOLONE
     Indication: LIVER TRANSPLANT
     Dosage: 5 MG, DAILY
     Route: 065
  14. AZATHIOPRINE. [Suspect]
     Active Substance: AZATHIOPRINE
     Indication: LIVER TRANSPLANT
     Dosage: 50 MG, DAILY
  15. URSODEOXYCHOLIC [Suspect]
     Active Substance: URSODIOL
     Indication: LIVER TRANSPLANT
     Dosage: 300 MG, BID
     Route: 065

REACTIONS (1)
  - Exposure during pregnancy [Unknown]
